FAERS Safety Report 7567887-5 (Version None)
Quarter: 2011Q2

REPORT INFORMATION
  Report Type: 
  Country: None (occurrence: None)
  Receive Date: 20110623
  Receipt Date: 20110616
  Transmission Date: 20111010
  Serious: Yes (Hospitalization)
  Sender: FDA-Public Use
  Company Number: FR-SANOFI-AVENTIS-2011SA038248

PATIENT
  Age: 74 Year
  Sex: Male

DRUGS (23)
  1. EZETIMIBE [Concomitant]
     Dosage: 0-0-1
     Route: 065
  2. CLONAZEPAM [Concomitant]
     Route: 065
  3. WATER [Suspect]
     Route: 065
  4. GENTAMICIN [Suspect]
     Route: 042
     Dates: start: 20110202, end: 20110215
  5. LEVOTHYROXINE SODIUM [Concomitant]
     Dosage: 1-0-0
     Route: 065
  6. LYRICA [Concomitant]
     Dosage: 1-1-1
     Route: 065
  7. VALIUM [Suspect]
     Route: 042
     Dates: start: 20110128, end: 20110201
  8. OXACILLIN [Suspect]
     Route: 042
     Dates: start: 20110204
  9. ATENOLOL [Concomitant]
     Dosage: 1-0-0
     Route: 065
  10. TAMSULOSIN HCL [Concomitant]
     Dosage: 1-0-0
     Route: 065
  11. SPASFON [Concomitant]
     Route: 065
  12. CLAFORAN [Suspect]
     Route: 042
     Dates: start: 20110202, end: 20110204
  13. MORPHINE [Suspect]
     Dosage: 2 MG AT 18:00, AT 19:00, AT 22:00, AT 24:00.
     Route: 042
     Dates: start: 20110128, end: 20110128
  14. SOLU-MEDROL [Suspect]
     Route: 042
     Dates: start: 20110128, end: 20110201
  15. FORLAX [Concomitant]
     Route: 065
  16. MELAXOSE [Concomitant]
     Route: 065
  17. FUCIDINE CAP [Suspect]
     Route: 042
     Dates: start: 20110215
  18. MIRTAZAPINE [Concomitant]
     Dosage: 0-0-2
     Route: 065
  19. ORBENIN CAP [Suspect]
     Route: 042
     Dates: start: 20110204
  20. CYMBALTA [Concomitant]
     Dosage: 1-0-0
     Route: 065
  21. ACETAMINOPHEN [Concomitant]
     Route: 065
  22. AMLODIPINE BESYLATE [Concomitant]
     Route: 065
  23. LANSOPRAZOLE [Concomitant]
     Dosage: 0-0-1
     Route: 065

REACTIONS (3)
  - OFF LABEL USE [None]
  - CATHETER SITE PHLEBITIS [None]
  - THROMBOPHLEBITIS SUPERFICIAL [None]
